FAERS Safety Report 10579573 (Version 1)
Quarter: 2014Q4

REPORT INFORMATION
  Report Type: Spontaneous
  Country: US (occurrence: US)
  Receive Date: 20141112
  Receipt Date: 20141112
  Transmission Date: 20150529
  Serious: Yes (Death)
  Sender: FDA-Public Use
  Company Number: US-ABBVIE-14K-163-1306827-00

PATIENT
  Sex: Female

DRUGS (3)
  1. UNKNOWN MEDICATION [Concomitant]
     Active Substance: UNSPECIFIED INGREDIENT
     Indication: NEOPLASM MALIGNANT
  2. PROZAC [Concomitant]
     Active Substance: FLUOXETINE HYDROCHLORIDE
     Indication: DEPRESSION
  3. HUMIRA [Suspect]
     Active Substance: ADALIMUMAB
     Indication: CROHN^S DISEASE
     Route: 065

REACTIONS (4)
  - Parkinson^s disease [Fatal]
  - Gallbladder disorder [Fatal]
  - Nervous system disorder [Fatal]
  - Nephrolithiasis [Fatal]
